FAERS Safety Report 4296091-1 (Version None)
Quarter: 2004Q1

REPORT INFORMATION
  Report Type: 
  Country: None (occurrence: None)
  Receive Date: 20040213
  Receipt Date: 20040213
  Transmission Date: 20041129
  Serious: Yes (Life-Threatening, Hospitalization, Disabling)
  Sender: FDA-Public Use
  Company Number: None

PATIENT
  Sex: Male
  Weight: 62.1428 kg

DRUGS (3)
  1. HUMALOG [Suspect]
     Indication: ANOREXIA
     Dosage: SEE IMAGE
     Route: 058
  2. HUMALOG [Suspect]
     Indication: DIABETIC GASTROPARESIS
     Dosage: SEE IMAGE
     Route: 058
  3. , [Concomitant]

REACTIONS (2)
  - DIABETIC GASTROPARESIS [None]
  - WEIGHT DECREASED [None]
